FAERS Safety Report 14816074 (Version 1)
Quarter: 2018Q2

REPORT INFORMATION
  Report Type: Spontaneous
  Country: US (occurrence: US)
  Receive Date: 20180426
  Receipt Date: 20180426
  Transmission Date: 20180711
  Serious: No
  Sender: FDA-Public Use
  Company Number: US-TAKEDA-2018TUS010898

PATIENT
  Sex: Male

DRUGS (2)
  1. DEXILANT [Suspect]
     Active Substance: DEXLANSOPRAZOLE
     Indication: DYSPEPSIA
     Dosage: 60 MG, QD
     Route: 048
     Dates: start: 20180408
  2. DEXILANT [Suspect]
     Active Substance: DEXLANSOPRAZOLE
     Indication: FLATULENCE

REACTIONS (3)
  - Off label use [Unknown]
  - Musculoskeletal pain [Unknown]
  - Condition aggravated [Unknown]

NARRATIVE: CASE EVENT DATE: 201804
